FAERS Safety Report 9663716 (Version 2)
Quarter: 2013Q4

REPORT INFORMATION
  Report Type: Spontaneous
  Country: VE (occurrence: VE)
  Receive Date: 20131101
  Receipt Date: 20131101
  Transmission Date: 20140711
  Serious: Yes (Other)
  Sender: FDA-Public Use
  Company Number: PHHY2013VE115235

PATIENT
  Age: 73 Year
  Sex: Female

DRUGS (5)
  1. FORADIL [Suspect]
     Indication: CHRONIC OBSTRUCTIVE PULMONARY DISEASE
     Dosage: 12 UG, Q12H
     Dates: end: 201310
  2. FORADIL [Suspect]
     Dates: start: 20131009
  3. FORADIL [Suspect]
     Dosage: 12 UG, Q12H
     Dates: end: 201310
  4. MIFLONIDE [Suspect]
     Indication: CHRONIC OBSTRUCTIVE PULMONARY DISEASE
     Dosage: 400 MG, Q12H
  5. MIFLONIDE [Suspect]
     Dates: start: 20131009

REACTIONS (6)
  - Respiratory failure [Recovered/Resolved]
  - Asphyxia [Recovered/Resolved]
  - Choking [Not Recovered/Not Resolved]
  - Lung infection [Recovered/Resolved]
  - Influenza [Recovered/Resolved]
  - Dyspnoea [Not Recovered/Not Resolved]
